FAERS Safety Report 21212329 (Version 3)
Quarter: 2022Q3

REPORT INFORMATION
  Report Type: Spontaneous
  Country: US (occurrence: US)
  Receive Date: 20220815
  Receipt Date: 20220822
  Transmission Date: 20221027
  Serious: No
  Sender: FDA-Public Use
  Company Number: US-PFIZER INC-202201054431

PATIENT
  Age: 67 Year
  Sex: Female
  Weight: 60.78 kg

DRUGS (1)
  1. PAXLOVID [Suspect]
     Active Substance: NIRMATRELVIR\RITONAVIR
     Indication: COVID-19 treatment
     Dosage: 3 DF, 2X/DAY (TAKE TWO NIRMATRELVIR AND ONE RITONAVIR TOGETHER BY MOUTH TWICE DAILY FOR FIVE)
     Route: 048
     Dates: start: 20220804

REACTIONS (6)
  - Gastrooesophageal reflux disease [Unknown]
  - Limb mass [Unknown]
  - Pain in extremity [Unknown]
  - Contusion [Unknown]
  - Bone pain [Unknown]
  - Malaise [Unknown]
